FAERS Safety Report 7163338 (Version 2)
Quarter: 2013Q3

REPORT INFORMATION
  Report Type: Report from Study
  Country: IL (occurrence: IL)
  Receive Date: 20091030
  Receipt Date: 20130917
  Transmission Date: 20140515
  Serious: Yes (Hospitalization)
  Sender: FDA-Public Use
  Company Number: IL-ROCHE-663458

PATIENT
  Age: 52 Year
  Sex: Female
  Weight: 67 kg

DRUGS (2)
  1. PEG-INTERFERON ALFA 2A [Suspect]
     Indication: CHRONIC HEPATITIS C
     Dosage: LAST DOSE PRIOR TO SAE: 10 OCT 2009.  THERAPY WAS PERMANENTLY DISCONTINUED.
     Route: 058
     Dates: start: 20090702, end: 20091011
  2. RIBAVIRIN [Suspect]
     Indication: CHRONIC HEPATITIS C
     Dosage: LAST DOSE PRIOR TO SAE: 10 OCTOBER 2009.  THERAPY WAS PERMANENTLY DISCONTINUED.
     Route: 048
     Dates: start: 20090702, end: 20091011

REACTIONS (1)
  - Uveitis [Recovered/Resolved]
